FAERS Safety Report 7422743-8 (Version None)
Quarter: 2011Q2

REPORT INFORMATION
  Report Type: 
  Country: None (occurrence: None)
  Receive Date: 20110419
  Receipt Date: 20110407
  Transmission Date: 20111010
  Serious: Yes (Hospitalization, Other)
  Sender: FDA-Public Use
  Company Number: NO-JNJFOC-20110403176

PATIENT
  Sex: Female

DRUGS (2)
  1. CONCERTA [Suspect]
     Indication: ATTENTION DEFICIT/HYPERACTIVITY DISORDER
     Dosage: 54 MG PLUS 18 MG DAILY
     Route: 048
  2. RITALIN [Suspect]
     Indication: ATTENTION DEFICIT/HYPERACTIVITY DISORDER
     Dosage: 20 MG PLUS 30 MG DAILY
     Route: 048

REACTIONS (7)
  - PLEURAL EFFUSION [None]
  - ENDOCARDITIS [None]
  - MENTAL DISORDER [None]
  - HAEMATURIA [None]
  - ATTENTION DEFICIT/HYPERACTIVITY DISORDER [None]
  - ABSCESS [None]
  - HAEMATEMESIS [None]
